FAERS Safety Report 20715453 (Version 1)
Quarter: 2022Q2

REPORT INFORMATION
  Report Type: Spontaneous
  Country: US (occurrence: US)
  Receive Date: 20220415
  Receipt Date: 20220415
  Transmission Date: 20220721
  Serious: No
  Sender: FDA-Public Use
  Company Number: US-PFIZER INC-2020480485

PATIENT
  Age: 12 Year
  Sex: Female

DRUGS (3)
  1. VFEND [Suspect]
     Active Substance: VORICONAZOLE
     Indication: Acute lymphocytic leukaemia
     Dosage: 200 MG, 2X/DA
     Route: 048
  2. VFEND [Suspect]
     Active Substance: VORICONAZOLE
     Indication: Pneumonia fungal
     Dosage: 250 MG, 2X/DAY (1T WITH 200 MG TAB FOR TOTAL DOSE OF 250 MG)
     Route: 048
  3. VFEND [Suspect]
     Active Substance: VORICONAZOLE
     Indication: Neutropenia

REACTIONS (1)
  - Disease recurrence [Unknown]
